FAERS Safety Report 6302951-X (Version None)
Quarter: 2009Q3

REPORT INFORMATION
  Report Type: 
  Country: None (occurrence: None)
  Receive Date: 20090810
  Receipt Date: 20090731
  Transmission Date: 20100115
  Serious: Yes (Hospitalization)
  Sender: FDA-Public Use
  Company Number: B0586720A

PATIENT
  Sex: Female

DRUGS (5)
  1. REQUIP [Suspect]
     Indication: PARKINSON'S DISEASE
     Route: 048
  2. MODOPAR [Suspect]
     Indication: DRUG USE FOR UNKNOWN INDICATION
     Route: 048
  3. ARICEPT [Suspect]
     Indication: DRUG USE FOR UNKNOWN INDICATION
     Route: 048
  4. PLAVIX [Concomitant]
     Route: 048
  5. SPIRONOLACTONE [Concomitant]
     Route: 048

REACTIONS (10)
  - CONFUSIONAL STATE [None]
  - ISCHAEMIA [None]
  - LOSS OF CONSCIOUSNESS [None]
  - NARCOLEPSY [None]
  - PARTIAL SEIZURES [None]
  - POSTICTAL STATE [None]
  - RALES [None]
  - SOMNOLENCE [None]
  - STUPOR [None]
  - VOMITING [None]
